FAERS Safety Report 4278557-3 (Version None)
Quarter: 2004Q1

REPORT INFORMATION
  Report Type: 
  Country: None (occurrence: None)
  Receive Date: 20040122
  Receipt Date: 20040106
  Transmission Date: 20041129
  Serious: Yes (Death, Hospitalization)
  Sender: FDA-Public Use
  Company Number: A01200304388

PATIENT
  Age: 43 Year
  Sex: Female

DRUGS (8)
  1. PLAVIX [Suspect]
     Dosage: 75 MG QD ORAL
     Route: 048
     Dates: start: 20030807, end: 20030815
  2. LANSOPRAZOLE [Concomitant]
  3. SOLPADOL (CODEINE + PARACETAMOL) [Concomitant]
  4. SIMVASTATIN [Concomitant]
  5. LISINOPRIL [Concomitant]
  6. INSULATARD NPH HUMAN [Concomitant]
  7. HUMAN ACTRAPID (INSULIN HUMAN) [Concomitant]
  8. ERYTHROMYCIN [Concomitant]

REACTIONS (16)
  - AGITATION [None]
  - ANAEMIA [None]
  - BLOOD GLUCOSE INCREASED [None]
  - BLOOD LACTATE DEHYDROGENASE INCREASED [None]
  - CARDIO-RESPIRATORY ARREST [None]
  - CONFUSIONAL STATE [None]
  - CONTUSION [None]
  - DIARRHOEA [None]
  - DISTURBANCE IN ATTENTION [None]
  - GENERAL PHYSICAL HEALTH DETERIORATION [None]
  - HAEMATURIA [None]
  - INFECTION [None]
  - JAUNDICE [None]
  - PULMONARY EMBOLISM [None]
  - PYREXIA [None]
  - THROMBOTIC THROMBOCYTOPENIC PURPURA [None]
